FAERS Safety Report 19760903 (Version 1)
Quarter: 2021Q3

REPORT INFORMATION
  Report Type: Spontaneous
  Country: US (occurrence: US)
  Receive Date: 20210828
  Receipt Date: 20210828
  Transmission Date: 20211014
  Serious: Yes (Other)
  Sender: FDA-Public Use
  Company Number: None

PATIENT
  Age: 62 Year
  Sex: Female
  Weight: 78.75 kg

DRUGS (16)
  1. AMITRIPTYLINE [Concomitant]
     Active Substance: AMITRIPTYLINE
  2. MAGNESIUM [Concomitant]
     Active Substance: MAGNESIUM
  3. VET B6 [Concomitant]
  4. ZYRTEC [Concomitant]
     Active Substance: CETIRIZINE HYDROCHLORIDE
  5. VIT B [Concomitant]
     Active Substance: VITAMIN B
  6. TYLENOL [Concomitant]
     Active Substance: ACETAMINOPHEN
  7. VIT D [Concomitant]
     Active Substance: VITAMIN D NOS
  8. BLACK COHASH [Concomitant]
  9. POTASSIUM [Concomitant]
     Active Substance: POTASSIUM
  10. VIT?E [Concomitant]
  11. CALCIUM [Concomitant]
     Active Substance: CALCIUM
  12. CASIRIVIMAB AND IMDEVIMAB [Suspect]
     Active Substance: CASIRIVIMAB\IMDEVIMAB
     Indication: SARS-COV-2 TEST POSITIVE
     Route: 042
     Dates: start: 20210825
  13. SYNTHROID [Concomitant]
     Active Substance: LEVOTHYROXINE SODIUM
  14. MUCINEX [Concomitant]
     Active Substance: GUAIFENESIN
  15. OMEPRAZABLE [Concomitant]
  16. FAMOTIDINE. [Concomitant]
     Active Substance: FAMOTIDINE

REACTIONS (4)
  - Middle insomnia [None]
  - Palpitations [None]
  - Chills [None]
  - Dizziness [None]

NARRATIVE: CASE EVENT DATE: 20210825
